FAERS Safety Report 10045316 (Version 3)
Quarter: 2014Q2

REPORT INFORMATION
  Report Type: Report from Study
  Country: US (occurrence: US)
  Receive Date: 20140328
  Receipt Date: 20140519
  Transmission Date: 20141212
  Serious: Yes (Other)
  Sender: FDA-Public Use
  Company Number: US-OTSUKA-US-2013-12092

PATIENT
  Age: 24 Year
  Sex: Male

DRUGS (4)
  1. BLINDED OPC-14597 [Suspect]
     Indication: BIPOLAR I DISORDER
     Dosage: 15 MG MILLIGRAM(S), UNK
     Route: 048
     Dates: start: 20131016, end: 20131105
  2. BLINDED OPC-14597 [Suspect]
     Dosage: 20 MG MILLIGRAM(S), QD
     Route: 048
     Dates: start: 20131106, end: 20131106
  3. ATIVAN [Concomitant]
     Indication: ANXIETY
     Dosage: 0.5 MG MILLIGRAM(S), PRN
     Route: 048
     Dates: start: 20131022
  4. ATIVAN [Concomitant]
     Indication: AGITATION

REACTIONS (1)
  - Bipolar disorder [Recovered/Resolved]
